FAERS Safety Report 6687943-3 (Version None)
Quarter: 2010Q2

REPORT INFORMATION
  Report Type: 
  Country: None (occurrence: None)
  Receive Date: 20100420
  Receipt Date: 20100406
  Transmission Date: 20101027
  Serious: Yes (Other)
  Sender: FDA-Public Use
  Company Number: GB-BAYER-201021391GPV

PATIENT
  Age: 41 Year
  Sex: Female

DRUGS (5)
  1. FLUDARABINE [Suspect]
     Indication: CHRONIC MYELOID LEUKAEMIA
  2. CYTARABINE [Suspect]
     Indication: CHRONIC MYELOID LEUKAEMIA
  3. DASATINIB [Suspect]
     Indication: CHRONIC MYELOID LEUKAEMIA
     Dates: start: 20100111, end: 20100101
  4. NEUPOGEN [Suspect]
     Indication: CHRONIC MYELOID LEUKAEMIA
  5. IDARUBICIN HCL [Suspect]
     Indication: CHRONIC MYELOID LEUKAEMIA

REACTIONS (3)
  - FEBRILE NEUTROPENIA [None]
  - PULMONARY MASS [None]
  - RASH [None]
